FAERS Safety Report 24697750 (Version 2)
Quarter: 2025Q1

REPORT INFORMATION
  Report Type: Spontaneous
  Country: US (occurrence: US)
  Receive Date: 20241204
  Receipt Date: 20250108
  Transmission Date: 20250409
  Serious: No
  Sender: SANOFI AVENTIS
  Company Number: US-SA-2024SA350754

PATIENT
  Sex: Female

DRUGS (1)
  1. FERRLECIT [Suspect]
     Active Substance: SODIUM FERRIC GLUCONATE COMPLEX

REACTIONS (18)
  - Blood pressure systolic decreased [Unknown]
  - Burning sensation [Unknown]
  - Hyperhidrosis [Recovering/Resolving]
  - Urticaria [Unknown]
  - Infusion related reaction [Unknown]
  - Throat irritation [Unknown]
  - Mouth swelling [Unknown]
  - Erythema [Unknown]
  - Paraesthesia oral [Recovering/Resolving]
  - Headache [Unknown]
  - Pyrexia [Unknown]
  - Hypotension [Recovering/Resolving]
  - Pallor [Unknown]
  - Chest pain [Recovering/Resolving]
  - Vomiting [Unknown]
  - Dyspnoea [Unknown]
  - Product quality issue [Unknown]
  - Off label use [Unknown]
